FAERS Safety Report 5094738-3 (Version None)
Quarter: 2006Q3

REPORT INFORMATION
  Report Type: 
  Country: None (occurrence: None)
  Receive Date: 20060731
  Receipt Date: 20060414
  Transmission Date: 20061208
  Serious: No
  Sender: FDA-Public Use
  Company Number: 2006PV012109

PATIENT
  Age: 54 Year
  Sex: Female
  Weight: 80.2867 kg

DRUGS (5)
  1. BYETTA [Suspect]
     Dosage: 5 MCG; QD; SC
     Route: 058
     Dates: start: 20060401
  2. LANTUS [Concomitant]
  3. HUMALOG [Concomitant]
  4. ACTOS [Concomitant]
  5. ZOCOR [Concomitant]

REACTIONS (10)
  - ASTHENIA [None]
  - BLOOD GLUCOSE INCREASED [None]
  - DECREASED APPETITE [None]
  - FATIGUE [None]
  - FLUSHING [None]
  - INFREQUENT BOWEL MOVEMENTS [None]
  - NAUSEA [None]
  - SOMNOLENCE [None]
  - STRESS [None]
  - VOMITING [None]
